FAERS Safety Report 14973781 (Version 1)
Quarter: 2018Q2

REPORT INFORMATION
  Report Type: Spontaneous
  Country: ES (occurrence: ES)
  Receive Date: 20180605
  Receipt Date: 20180605
  Transmission Date: 20180711
  Serious: Yes (Disabling, Other)
  Sender: FDA-Public Use
  Company Number: ES-JNJFOC-20180541873

PATIENT
  Age: 77 Year
  Sex: Female
  Weight: 52 kg

DRUGS (6)
  1. OSSEOR [Concomitant]
     Indication: OSTEOPOROSIS
     Route: 065
  2. TERIPARATIDE [Suspect]
     Active Substance: TERIPARATIDE
     Indication: OSTEOPOROSIS
     Route: 058
     Dates: start: 20180514
  3. TERIPARATIDE [Suspect]
     Active Substance: TERIPARATIDE
     Indication: OSTEOPOROSIS
     Route: 058
     Dates: start: 20070723, end: 2008
  4. ALENDRONIC ACID [Concomitant]
     Active Substance: ALENDRONIC ACID
     Indication: OSTEOPOROSIS
     Route: 065
  5. FENTANYL. [Suspect]
     Active Substance: FENTANYL
     Indication: PAIN
     Route: 062
     Dates: start: 201801
  6. PROLIA [Concomitant]
     Active Substance: DENOSUMAB
     Indication: OSTEOPOROSIS
     Route: 065

REACTIONS (10)
  - Deafness [Unknown]
  - Dry mouth [Unknown]
  - Retching [Unknown]
  - Chronic obstructive pulmonary disease [Unknown]
  - Body height decreased [Not Recovered/Not Resolved]
  - Cough [Unknown]
  - Feeling abnormal [Unknown]
  - Fall [Unknown]
  - Lumbar vertebral fracture [Unknown]
  - Diverticulum [Unknown]

NARRATIVE: CASE EVENT DATE: 201801
